FAERS Safety Report 17209918 (Version 1)
Quarter: 2019Q4

REPORT INFORMATION
  Report Type: Spontaneous
  Country: IT (occurrence: IT)
  Receive Date: 20191227
  Receipt Date: 20191227
  Transmission Date: 20200122
  Serious: Yes (Other)
  Sender: FDA-Public Use
  Company Number: IT-JAZZ-2019-IT-017893

PATIENT
  Age: 25 Year
  Sex: Female

DRUGS (1)
  1. DEFITELIO [Suspect]
     Active Substance: DEFIBROTIDE SODIUM
     Indication: VENOOCCLUSIVE DISEASE
     Dosage: UNK
     Dates: start: 201907

REACTIONS (3)
  - Shock haemorrhagic [Unknown]
  - Peritoneal haemorrhage [Unknown]
  - Hepatic haematoma [Unknown]

NARRATIVE: CASE EVENT DATE: 20190716
